FAERS Safety Report 20047591 (Version 1)
Quarter: 2021Q4

REPORT INFORMATION
  Report Type: Spontaneous
  Country: US (occurrence: US)
  Receive Date: 20211109
  Receipt Date: 20211109
  Transmission Date: 20220303
  Serious: Yes (Other)
  Sender: FDA-Public Use
  Company Number: US-BAYER-2021A244196

PATIENT
  Age: 56 Year
  Sex: Female

DRUGS (1)
  1. KYLEENA [Suspect]
     Active Substance: LEVONORGESTREL
     Indication: Hormone replacement therapy
     Dosage: 17.5?G/DAY
     Route: 015
     Dates: start: 202110

REACTIONS (3)
  - Off label use of device [None]
  - Device use issue [None]
  - Device dislocation [None]

NARRATIVE: CASE EVENT DATE: 20211001
